FAERS Safety Report 20719909 (Version 1)
Quarter: 2022Q2

REPORT INFORMATION
  Report Type: Spontaneous
  Country: None (occurrence: CN)
  Receive Date: 20220418
  Receipt Date: 20220418
  Transmission Date: 20220720
  Serious: Yes (Other)
  Sender: FDA-Public Use
  Company Number: CN-Shanghai Hengrui Pharmaceutical Co., Ltd.-2127855

PATIENT

DRUGS (7)
  1. SEVOFLURANE [Suspect]
     Active Substance: SEVOFLURANE
     Indication: Maintenance of anaesthesia
     Route: 055
  2. MIDAZOLAM [Suspect]
     Active Substance: MIDAZOLAM
     Route: 041
  3. PENEHYCLIDINE HYDROCHLORIDE [Suspect]
     Active Substance: PENEHYCLIDINE HYDROCHLORIDE
  4. FENTANYL CITRATE [Suspect]
     Active Substance: FENTANYL CITRATE
  5. PROPOFOL [Suspect]
     Active Substance: PROPOFOL
  6. VECURONIUM [Suspect]
     Active Substance: VECURONIUM BROMIDE
  7. CISATRACURIUM BESYLATE [Suspect]
     Active Substance: CISATRACURIUM BESYLATE

REACTIONS (1)
  - Respiratory depression [Unknown]
